FAERS Safety Report 19688277 (Version 2)
Quarter: 2022Q2

REPORT INFORMATION
  Report Type: Spontaneous
  Country: US (occurrence: US)
  Receive Date: 20210812
  Receipt Date: 20220411
  Transmission Date: 20220720
  Serious: Yes (Life-Threatening, Hospitalization, Other)
  Sender: FDA-Public Use
  Company Number: US-CIPLA LTD.-2021US05419

PATIENT

DRUGS (4)
  1. SERTRALINE [Suspect]
     Active Substance: SERTRALINE HYDROCHLORIDE
     Indication: Major depression
     Dosage: 200 MILLIGRAM, ONCE IN A DAY
     Route: 064
  2. TRAZODONE [Suspect]
     Active Substance: TRAZODONE HYDROCHLORIDE
     Indication: Major depression
     Dosage: 150 MILLIGRAM, ONCE IN A DAY
     Route: 064
  3. VENLAFAXINE [Suspect]
     Active Substance: VENLAFAXINE HYDROCHLORIDE
     Indication: Major depression
     Dosage: 150 MILLIGRAM, ONCE IN A DAY
     Route: 064
  4. BUSPIRONE [Concomitant]
     Active Substance: BUSPIRONE HYDROCHLORIDE
     Indication: Major depression
     Dosage: 5 MILLIGRAM, PER 8 HOURS
     Route: 064

REACTIONS (5)
  - Neonatal behavioural syndrome [Recovering/Resolving]
  - Foetal growth restriction [Unknown]
  - Small for dates baby [Unknown]
  - Serotonin syndrome [Recovering/Resolving]
  - Foetal exposure during pregnancy [Unknown]
